FAERS Safety Report 5051556-X (Version None)
Quarter: 2006Q2

REPORT INFORMATION
  Report Type: 
  Country: None (occurrence: None)
  Receive Date: 20060614
  Receipt Date: 20060406
  Transmission Date: 20061013
  Serious: Yes (Other)
  Sender: FDA-Public Use
  Company Number: 443707

PATIENT
  Age: 62 Year
  Sex: Female

DRUGS (2)
  1. BONIVA [Suspect]
     Indication: OSTEOPOROSIS
     Dosage: 1 PER MONTH ORAL
     Route: 048
     Dates: start: 20051115
  2. CALCIUM/VITAMIN D (CALCIUM/VITAMIN D NOS) [Concomitant]

REACTIONS (4)
  - ABASIA [None]
  - CONTUSION [None]
  - JOINT SWELLING [None]
  - MUSCLE SPASMS [None]
